FAERS Safety Report 10010611 (Version 2)
Quarter: 2014Q1

REPORT INFORMATION
  Report Type: Spontaneous
  Country: US (occurrence: US)
  Receive Date: 20140314
  Receipt Date: 20140314
  Transmission Date: 20141002
  Serious: No
  Sender: FDA-Public Use
  Company Number: US-DRREDDYS-USA/USA/13/0036238

PATIENT
  Age: 86 Year
  Sex: Female

DRUGS (1)
  1. LANSOPRAZOLE DR CAPSULES 15MG OTC [Suspect]
     Indication: GASTROOESOPHAGEAL REFLUX DISEASE
     Route: 048
     Dates: start: 20131113, end: 2013

REACTIONS (2)
  - Diarrhoea [Recovered/Resolved]
  - Incorrect drug administration duration [Unknown]
